FAERS Safety Report 10273764 (Version 2)
Quarter: 2014Q3

REPORT INFORMATION
  Report Type: Spontaneous
  Country: US (occurrence: US)
  Receive Date: 20140702
  Receipt Date: 20140702
  Transmission Date: 20150326
  Serious: Yes (Hospitalization)
  Sender: FDA-Public Use
  Company Number: US-GLAXOSMITHKLINE-A0365748A

PATIENT
  Age: 52 Year
  Sex: Male
  Weight: 99.1 kg

DRUGS (14)
  1. VITAMIN E [Concomitant]
     Active Substance: .ALPHA.-TOCOPHEROL
  2. ATENOLOL. [Concomitant]
     Active Substance: ATENOLOL
  3. NITROGLYCERIN. [Concomitant]
     Active Substance: NITROGLYCERIN
  4. STARLIX [Concomitant]
     Active Substance: NATEGLINIDE
     Dosage: 120MG TWICE PER DAY
     Route: 048
     Dates: start: 200111
  5. AVANDIA [Suspect]
     Active Substance: ROSIGLITAZONE MALEATE
     Indication: TYPE 2 DIABETES MELLITUS
     Dosage: 4MG PER DAY
     Route: 048
     Dates: start: 200111, end: 200702
  6. LOPID [Concomitant]
     Active Substance: GEMFIBROZIL
     Dosage: 600MG TWICE PER DAY
  7. PLAVIX [Concomitant]
     Active Substance: CLOPIDOGREL BISULFATE
  8. IMDUR [Concomitant]
     Active Substance: ISOSORBIDE MONONITRATE
     Dosage: 600MG TWICE PER DAY
  9. VITAMIN C [Concomitant]
     Active Substance: ASCORBIC ACID
  10. CENTRUM [Concomitant]
     Active Substance: VITAMINS
  11. LIPITOR [Concomitant]
     Active Substance: ATORVASTATIN CALCIUM
     Dosage: 80MG PER DAY
     Route: 048
  12. ALLOPURINOL. [Concomitant]
     Active Substance: ALLOPURINOL
  13. PRINIVIL [Concomitant]
     Active Substance: LISINOPRIL
  14. NORVASC [Concomitant]
     Active Substance: AMLODIPINE BESYLATE
     Dosage: 5MG PER DAY
     Route: 048

REACTIONS (5)
  - Coronary artery disease [Unknown]
  - Hyperlipidaemia [Unknown]
  - Cardiac failure congestive [Unknown]
  - Weight increased [Unknown]
  - Myocardial infarction [Not Recovered/Not Resolved]

NARRATIVE: CASE EVENT DATE: 200111
